FAERS Safety Report 4510630-4 (Version None)
Quarter: 2004Q4

REPORT INFORMATION
  Report Type: 
  Country: None (occurrence: None)
  Receive Date: 20041122
  Receipt Date: 20041105
  Transmission Date: 20050328
  Serious: No
  Sender: FDA-Public Use
  Company Number: 9239

PATIENT
  Age: 35 Year
  Sex: Female

DRUGS (7)
  1. CYTARABINE [Suspect]
     Indication: LYMPHOMA
     Dosage: 1000 MG/M2 ONCE IV
     Route: 042
  2. LANSOPRAZOLE [Concomitant]
  3. CIPROFLOXACIN [Concomitant]
  4. NORETHISTERONE [Concomitant]
  5. CEFTRIAXONE SODIUM [Concomitant]
  6. VENLAFAXINE [Concomitant]
  7. NYSTATIN [Concomitant]

REACTIONS (2)
  - CIRCULATORY COLLAPSE [None]
  - CONVULSION [None]
